FAERS Safety Report 7314366-6 (Version None)
Quarter: 2011Q1

REPORT INFORMATION
  Report Type: 
  Country: None (occurrence: None)
  Receive Date: 20110225
  Receipt Date: 20100823
  Transmission Date: 20110831
  Serious: No
  Sender: FDA-Public Use
  Company Number: US-MYLANLABS-2010S1014017

PATIENT
  Age: 20 Year
  Sex: Female
  Weight: 55.34 kg

DRUGS (8)
  1. AMNESTEEM [Suspect]
     Indication: ACNE CYSTIC
     Route: 048
     Dates: start: 20100620
  2. SYNTHROID [Concomitant]
     Indication: AUTOIMMUNE THYROIDITIS
  3. CEPHALEXIN [Concomitant]
  4. CALCIUM [Concomitant]
  5. FISH OIL [Concomitant]
  6. VITAMIN B-12 [Concomitant]
  7. RELPAX [Concomitant]
     Indication: MIGRAINE
  8. ORTHO TRI-CYCLEN [Concomitant]
     Indication: CONTRACEPTION

REACTIONS (4)
  - EPISTAXIS [None]
  - DRY SKIN [None]
  - DYSPAREUNIA [None]
  - VULVOVAGINAL DRYNESS [None]
